FAERS Safety Report 8693093 (Version 2)
Quarter: 2012Q4

REPORT INFORMATION
  Report Type: 
  Country: FR (occurrence: FR)
  Receive Date: 20120730
  Receipt Date: 20120921
  Transmission Date: 20130627
  Serious: Yes (Hospitalization)
  Sender: FDA-Public Use
  Company Number: FR-ALEXION-A201201379

PATIENT
  Age: 33 Year
  Sex: Male
  Weight: 130 kg

DRUGS (2)
  1. SOLIRIS 300MG [Suspect]
     Indication: PAROXYSMAL NOCTURNAL HAEMOGLOBINURIA
     Dosage: 900 mg, q2w
     Route: 042
  2. SOLIRIS 300MG [Suspect]
     Dosage: 900 mg, q 10 days
     Route: 042
     Dates: start: 201111

REACTIONS (3)
  - Bronchitis [Recovered/Resolved]
  - Haemolysis [Recovered/Resolved]
  - Inappropriate schedule of drug administration [Recovered/Resolved]
